FAERS Safety Report 6136882-5 (Version None)
Quarter: 2009Q1

REPORT INFORMATION
  Report Type: 
  Country: None (occurrence: None)
  Receive Date: 20090330
  Receipt Date: 20090316
  Transmission Date: 20090719
  Serious: Yes (Other)
  Sender: FDA-Public Use
  Company Number: ES-CELGENEUS-144-21880-09031303

PATIENT
  Sex: Male

DRUGS (2)
  1. REVLIMID [Suspect]
     Indication: MYELOFIBROSIS
     Route: 048
     Dates: start: 20081107
  2. LMWH [Suspect]
     Indication: THROMBOSIS PROPHYLAXIS
     Route: 051

REACTIONS (6)
  - ANAEMIA [None]
  - ASTHENIA [None]
  - DYSPNOEA [None]
  - MUSCULOSKELETAL PAIN [None]
  - NEUTROPENIA [None]
  - THROMBOCYTOPENIA [None]
